FAERS Safety Report 13090402 (Version 1)
Quarter: 2017Q1

REPORT INFORMATION
  Report Type: Spontaneous
  Country: US (occurrence: US)
  Receive Date: 20170105
  Receipt Date: 20170105
  Transmission Date: 20170428
  Serious: No
  Sender: FDA-Public Use
  Company Number: US-ENDO PHARMACEUTICALS INC.-2016-007205

PATIENT
  Sex: Male

DRUGS (2)
  1. FORTESTA [Suspect]
     Active Substance: TESTOSTERONE
     Dosage: SEVEN PUMPS APPLIED DAILY
     Route: 061
  2. FORTESTA [Suspect]
     Active Substance: TESTOSTERONE
     Indication: PRODUCT USED FOR UNKNOWN INDICATION
     Dosage: NINE PUMPS APPLIED DAILY
     Route: 061

REACTIONS (2)
  - Blood testosterone decreased [Unknown]
  - Prescribed overdose [Unknown]
